FAERS Safety Report 15515519 (Version 1)
Quarter: 2018Q4

REPORT INFORMATION
  Report Type: Spontaneous
  Country: US (occurrence: US)
  Receive Date: 20181017
  Receipt Date: 20181017
  Transmission Date: 20190205
  Serious: Yes (Other)
  Sender: FDA-Public Use
  Company Number: US-009507513-1810USA007294

PATIENT
  Age: 64 Year
  Sex: Female
  Weight: 113.4 kg

DRUGS (7)
  1. JANUVIA [Suspect]
     Active Substance: SITAGLIPTIN PHOSPHATE
     Dosage: 100 MG ONCE DAILY
     Route: 048
  2. CARVEDILOL. [Suspect]
     Active Substance: CARVEDILOL
     Dosage: UNK
     Route: 065
     Dates: start: 2007
  3. DIETARY SUPPLEMENT (UNSPECIFIED) [Concomitant]
     Active Substance: DIETARY SUPPLEMENT
     Dosage: MOST EVERY DAY
  4. ATENOLOL. [Suspect]
     Active Substance: ATENOLOL
     Indication: TACHYCARDIA
     Dosage: 50 MG, 2X/DAY
     Route: 048
     Dates: start: 2007
  5. LISINOPRIL. [Concomitant]
     Active Substance: LISINOPRIL
     Dosage: 40 MG ONCE A DAY
  6. ASPIRIN. [Concomitant]
     Active Substance: ASPIRIN
  7. ATENOLOL. [Suspect]
     Active Substance: ATENOLOL
     Indication: HYPERTENSION
     Dosage: 50 MG TWICE DAILY
     Route: 048
     Dates: start: 2007, end: 2007

REACTIONS (6)
  - Tachycardia [Not Recovered/Not Resolved]
  - Diabetes mellitus [Not Recovered/Not Resolved]
  - Fluid retention [Not Recovered/Not Resolved]
  - Tendon injury [Not Recovered/Not Resolved]
  - Drug ineffective [Not Recovered/Not Resolved]
  - Off label use [Unknown]

NARRATIVE: CASE EVENT DATE: 2007
